FAERS Safety Report 9708392 (Version 1)
Quarter: 2013Q4

REPORT INFORMATION
  Report Type: Spontaneous
  Country: US (occurrence: US)
  Receive Date: 20131125
  Receipt Date: 20131125
  Transmission Date: 20140711
  Serious: No
  Sender: FDA-Public Use
  Company Number: US-BAYER-2013-142481

PATIENT
  Age: 50 Year
  Sex: Female
  Weight: 104.31 kg

DRUGS (1)
  1. ALEVE CAPLET [Suspect]
     Indication: HEADACHE
     Dosage: 4 DF, ONCE
     Route: 048
     Dates: start: 20131117, end: 20131117

REACTIONS (1)
  - Incorrect drug administration duration [None]
